FAERS Safety Report 24964100 (Version 1)
Quarter: 2025Q1

REPORT INFORMATION
  Report Type: Spontaneous
  Country: CA (occurrence: CA)
  Receive Date: 20250213
  Receipt Date: 20250213
  Transmission Date: 20250408
  Serious: Yes (Other)
  Sender: CSL BEHRING
  Company Number: CA-BEH-2025195167

PATIENT
  Age: 56 Year
  Sex: Female

DRUGS (18)
  1. HUMAN IMMUNOGLOBULIN G [Suspect]
     Active Substance: HUMAN IMMUNOGLOBULIN G
     Indication: Primary immunodeficiency syndrome
     Route: 065
  2. HUMAN IMMUNOGLOBULIN G [Suspect]
     Active Substance: HUMAN IMMUNOGLOBULIN G
     Dosage: 14 G, QW
     Route: 065
  3. HUMAN IMMUNOGLOBULIN G [Suspect]
     Active Substance: HUMAN IMMUNOGLOBULIN G
     Dosage: 2 G, QW
     Route: 058
  4. ELASOMERAN [Suspect]
     Active Substance: ELASOMERAN
     Indication: COVID-19 immunisation
     Route: 065
  5. HIZENTRA [Concomitant]
     Active Substance: HUMAN IMMUNOGLOBULIN G
     Indication: Product used for unknown indication
     Route: 065
  6. TRAMADOL HYDROCHLORIDE [Concomitant]
     Active Substance: TRAMADOL HYDROCHLORIDE
  7. ATACAND [Concomitant]
     Active Substance: CANDESARTAN CILEXETIL
     Indication: Product used for unknown indication
     Route: 065
  8. ATENOLOL [Concomitant]
     Active Substance: ATENOLOL
     Indication: Product used for unknown indication
     Route: 065
  9. DETROL LA [Concomitant]
     Active Substance: TOLTERODINE TARTRATE
     Indication: Product used for unknown indication
     Route: 065
  10. DEXILANT [Concomitant]
     Active Substance: DEXLANSOPRAZOLE
     Indication: Product used for unknown indication
     Route: 065
  11. EZETIMIBE [Concomitant]
     Active Substance: EZETIMIBE
     Indication: Product used for unknown indication
     Route: 065
  12. GRAVOL [Concomitant]
     Active Substance: DIMENHYDRINATE
     Indication: Product used for unknown indication
     Dosage: UNK, BID
     Route: 065
  13. INSULIN NOS [Concomitant]
     Active Substance: INSULIN NOS
     Indication: Product used for unknown indication
     Route: 065
  14. METFORMIN [Concomitant]
     Active Substance: METFORMIN HYDROCHLORIDE
     Indication: Product used for unknown indication
     Route: 065
  15. TRESIBA [Concomitant]
     Active Substance: INSULIN DEGLUDEC
  16. TRAMADOL HYDROCHLORIDE [Concomitant]
     Active Substance: TRAMADOL HYDROCHLORIDE
     Indication: Product used for unknown indication
  17. TRAMADOL HYDROCHLORIDE [Concomitant]
     Active Substance: TRAMADOL HYDROCHLORIDE
     Indication: Product used for unknown indication
  18. ULTRAM [Concomitant]
     Active Substance: TRAMADOL HYDROCHLORIDE

REACTIONS (51)
  - Abdominal discomfort [Recovering/Resolving]
  - Arthralgia [Recovering/Resolving]
  - Back pain [Recovering/Resolving]
  - Bladder pain [Recovering/Resolving]
  - Blood glucose decreased [Recovering/Resolving]
  - Blood glucose increased [Recovering/Resolving]
  - Blood insulin decreased [Recovering/Resolving]
  - Blood insulin increased [Recovering/Resolving]
  - COVID-19 immunisation [Recovering/Resolving]
  - Chills [Recovering/Resolving]
  - Contusion [Recovering/Resolving]
  - Diarrhoea [Recovering/Resolving]
  - Cystitis [Recovering/Resolving]
  - Dizziness [Recovering/Resolving]
  - Ear pain [Recovering/Resolving]
  - Erythema [Recovering/Resolving]
  - Fall [Recovering/Resolving]
  - Fatigue [Recovering/Resolving]
  - Haematochezia [Recovering/Resolving]
  - Headache [Recovering/Resolving]
  - Hyperhidrosis [Recovering/Resolving]
  - Hyperkeratosis follicularis et parafollicularis [Recovering/Resolving]
  - Infusion site erythema [Recovering/Resolving]
  - Infusion site haemorrhage [Recovering/Resolving]
  - Infusion site pruritus [Recovering/Resolving]
  - Infusion site warmth [Recovering/Resolving]
  - Injection site reaction [Recovering/Resolving]
  - Irritable bowel syndrome [Recovering/Resolving]
  - Malaise [Recovering/Resolving]
  - Muscle spasms [Recovering/Resolving]
  - Myalgia [Recovering/Resolving]
  - Nausea [Recovering/Resolving]
  - Neck pain [Recovering/Resolving]
  - Oral pain [Recovering/Resolving]
  - Oropharyngeal pain [Recovering/Resolving]
  - Pain [Recovering/Resolving]
  - Pain in extremity [Recovering/Resolving]
  - Pain in jaw [Recovering/Resolving]
  - Peripheral swelling [Recovering/Resolving]
  - Pruritus [Recovering/Resolving]
  - Rash [Recovering/Resolving]
  - Rhinorrhoea [Recovering/Resolving]
  - Sciatica [Recovering/Resolving]
  - Sinus congestion [Recovering/Resolving]
  - Tenderness [Recovering/Resolving]
  - Throat irritation [Recovering/Resolving]
  - Tonsillitis [Recovering/Resolving]
  - Toothache [Recovering/Resolving]
  - Vertigo [Recovering/Resolving]
  - Visual impairment [Recovering/Resolving]
  - Off label use [Unknown]
